FAERS Safety Report 7197180-4 (Version None)
Quarter: 2010Q4

REPORT INFORMATION
  Report Type: 
  Country: None (occurrence: None)
  Receive Date: 20101224
  Receipt Date: 20101211
  Transmission Date: 20110411
  Serious: Yes (Hospitalization)
  Sender: FDA-Public Use
  Company Number: PHHY2010US81905

PATIENT
  Age: 75 Year
  Sex: Male

DRUGS (4)
  1. EXJADE [Suspect]
     Indication: NEOPLASM
     Dosage: 2000 MG, QD
     Route: 048
  2. EXJADE [Suspect]
     Dosage: 2 TABLETS DAILY
  3. EXJADE [Suspect]
     Dosage: 3 TABLETS DAILY
  4. EXJADE [Suspect]
     Dosage: 2 TABLETS

REACTIONS (3)
  - DIARRHOEA [None]
  - MOUTH ULCERATION [None]
  - WHITE BLOOD CELL COUNT DECREASED [None]
